FAERS Safety Report 8213245-X (Version None)
Quarter: 2012Q1

REPORT INFORMATION
  Report Type: 
  Country: None (occurrence: None)
  Receive Date: 20120315
  Receipt Date: 20110804
  Transmission Date: 20120608
  Serious: No
  Sender: FDA-Public Use
  Company Number: US-ASTRAZENECA-2011SE46856

PATIENT
  Age: 73 Year
  Sex: Male
  Weight: 92.1 kg

DRUGS (2)
  1. TOO NUMEROUS TO LIST [Concomitant]
  2. TOPROL-XL [Suspect]
     Indication: HYPERTENSION
     Route: 048
     Dates: start: 20050101

REACTIONS (1)
  - MUSCLE SPASMS [None]
